FAERS Safety Report 4278350-1 (Version None)
Quarter: 2004Q1

REPORT INFORMATION
  Report Type: 
  Country: None (occurrence: None)
  Receive Date: 20040123
  Receipt Date: 20030919
  Transmission Date: 20041129
  Serious: Yes (Life-Threatening, Hospitalization)
  Sender: FDA-Public Use
  Company Number: US-ROCHE-347305

PATIENT
  Age: 64 Year
  Sex: Male
  Weight: 58.6 kg

DRUGS (2)
  1. CAPECITABINE [Suspect]
     Dosage: POST-OPERATIVELY
     Route: 048
     Dates: start: 20030805
  2. CAPECITABINE [Suspect]
     Dosage: MONDAY TO FRIDAY FOR TWO CYCLES PRE-OPERATIVELY
     Route: 048

REACTIONS (2)
  - CAROTID ARTERY OCCLUSION [None]
  - CEREBROVASCULAR ACCIDENT [None]
